FAERS Safety Report 9434828 (Version 1)
Quarter: 2013Q3

REPORT INFORMATION
  Report Type: Report from Study
  Country: US (occurrence: US)
  Receive Date: 20130801
  Receipt Date: 20130801
  Transmission Date: 20140515
  Serious: Yes (Other)
  Sender: FDA-Public Use
  Company Number: US-PFIZER INC-2013210341

PATIENT
  Age: 36 Year
  Sex: Male

DRUGS (9)
  1. NELFINAVIR MESILATE [Suspect]
     Indication: HIV INFECTION
     Dosage: UNK
  2. NELFINAVIR MESILATE [Suspect]
     Indication: PROGRESSIVE MULTIFOCAL LEUKOENCEPHALOPATHY
  3. LAMIVUDINE [Suspect]
     Indication: HIV INFECTION
     Dosage: UNK
  4. LAMIVUDINE [Suspect]
     Indication: PROGRESSIVE MULTIFOCAL LEUKOENCEPHALOPATHY
  5. STAVUDINE [Suspect]
     Indication: HIV INFECTION
     Dosage: UNK
  6. STAVUDINE [Suspect]
     Indication: PROGRESSIVE MULTIFOCAL LEUKOENCEPHALOPATHY
  7. EFAVIRENZ [Suspect]
     Indication: HIV INFECTION
     Dosage: UNK
  8. EFAVIRENZ [Suspect]
     Indication: PROGRESSIVE MULTIFOCAL LEUKOENCEPHALOPATHY
  9. CIDOFOVIR [Concomitant]
     Indication: PROGRESSIVE MULTIFOCAL LEUKOENCEPHALOPATHY
     Dosage: UNK

REACTIONS (4)
  - Immune reconstitution inflammatory syndrome [Recovering/Resolving]
  - Headache [Recovering/Resolving]
  - Photophobia [Recovering/Resolving]
  - Cranial nerve palsies multiple [Recovering/Resolving]
